FAERS Safety Report 10233567 (Version 1)
Quarter: 2014Q1

REPORT INFORMATION
  Report Type: Spontaneous
  Country: US (occurrence: None)
  Receive Date: 20140306
  Receipt Date: 20140306
  Transmission Date: 20141002
  Serious: Yes (Hospitalization)
  Sender: FDA-Public Use
  Company Number: 163-21880-13052766

PATIENT
  Age: 87 Year
  Sex: Male
  Weight: 58.97 kg

DRUGS (5)
  1. REVLIMID (LENALIDOMIDE) (25 MILLIGRAM, CAPSULES) [Suspect]
     Indication: PLASMA CELL MYELOMA
     Dosage: 25 MG, 14 IN 14 D
     Route: 048
     Dates: start: 20130416
  2. DIFLUCAN (FLUCONAZOLE) (TABLETS) [Concomitant]
  3. VICODIN (VICODIN) [Concomitant]
  4. LISINOPRIL (LISINOPRIL) [Concomitant]
  5. ARMOUR THYROID (THYROID) [Concomitant]

REACTIONS (6)
  - Full blood count decreased [None]
  - Weight decreased [None]
  - Oral fungal infection [None]
  - Dysphagia [None]
  - Dyspepsia [None]
  - Vomiting [None]
